FAERS Safety Report 6973847-5 (Version None)
Quarter: 2010Q3

REPORT INFORMATION
  Report Type: 
  Country: None (occurrence: None)
  Receive Date: 20100909
  Receipt Date: 20100902
  Transmission Date: 20110219
  Serious: Yes (Hospitalization, Other)
  Sender: FDA-Public Use
  Company Number: B0550080A

PATIENT
  Age: 26 Year
  Sex: Male

DRUGS (6)
  1. LAMIVUDINE [Suspect]
     Indication: HIV INFECTION
     Route: 048
     Dates: start: 20020910
  2. STAVUDINE [Suspect]
     Indication: HIV INFECTION
     Route: 048
     Dates: start: 20020601
  3. LOPINAVIR/RITONAVIR [Suspect]
     Indication: HIV INFECTION
     Route: 048
     Dates: start: 20020910
  4. STAVUDINE [Suspect]
     Indication: HIV INFECTION
     Route: 065
     Dates: start: 20020910
  5. ATAZANAVIR [Suspect]
     Indication: HIV INFECTION
     Route: 065
     Dates: start: 20040323
  6. RITONAVIR [Suspect]
     Indication: HIV INFECTION
     Route: 065
     Dates: start: 20041012

REACTIONS (3)
  - BLOOD CREATININE INCREASED [None]
  - IMMUNE RECONSTITUTION SYNDROME [None]
  - PULMONARY SARCOIDOSIS [None]
